FAERS Safety Report 5412255-5 (Version None)
Quarter: 2007Q3

REPORT INFORMATION
  Report Type: 
  Country: None (occurrence: None)
  Receive Date: 20070713
  Receipt Date: 20070517
  Transmission Date: 20080115
  Serious: No
  Sender: FDA-Public Use
  Company Number: 2007SP001856

PATIENT
  Age: 37 Year
  Sex: Female
  Weight: 117.9352 kg

DRUGS (5)
  1. LUNESTA [Suspect]
     Indication: INSOMNIA
     Dosage: 3 MG;HS;ORAL
     Route: 048
     Dates: start: 20070510, end: 20070516
  2. LYRICA [Concomitant]
  3. NEXIUM [Concomitant]
  4. VITAMIN B15 [Concomitant]
  5. TYLENOL [Concomitant]

REACTIONS (1)
  - DYSGEUSIA [None]
